FAERS Safety Report 9766053 (Version 1)
Quarter: 2013Q4

REPORT INFORMATION
  Report Type: Spontaneous
  Country: US (occurrence: US)
  Receive Date: 20131217
  Receipt Date: 20131217
  Transmission Date: 20140711
  Serious: No
  Sender: FDA-Public Use
  Company Number: US-GLAXOSMITHKLINE-A1017052A

PATIENT
  Age: 67 Year
  Sex: Female

DRUGS (2)
  1. VOTRIENT [Suspect]
     Indication: NEOPLASM MALIGNANT
     Dosage: 200MG FOUR TIMES PER DAY
     Route: 048
     Dates: start: 201210, end: 201302
  2. OTHER MEDICATIONS [Concomitant]

REACTIONS (3)
  - Condition aggravated [Not Recovered/Not Resolved]
  - Drug ineffective [Unknown]
  - Neoplasm [Unknown]
